FAERS Safety Report 20693631 (Version 3)
Quarter: 2022Q2

REPORT INFORMATION
  Report Type: Spontaneous
  Country: US (occurrence: US)
  Receive Date: 20220411
  Receipt Date: 20220421
  Transmission Date: 20220720
  Serious: No
  Sender: FDA-Public Use
  Company Number: US-BEH-2022143945

PATIENT
  Sex: Female

DRUGS (5)
  1. BERINERT [Suspect]
     Active Substance: HUMAN C1-ESTERASE INHIBITOR
     Indication: Hypokalaemia
     Dosage: 1000 INTERNATIONAL UNIT, PRN
     Route: 042
     Dates: start: 20200204
  2. BERINERT [Suspect]
     Active Substance: HUMAN C1-ESTERASE INHIBITOR
     Indication: Hypokalaemia
     Dosage: 1000 INTERNATIONAL UNIT, PRN
     Route: 042
     Dates: start: 20200204
  3. BERINERT [Suspect]
     Active Substance: HUMAN C1-ESTERASE INHIBITOR
     Indication: Hereditary angioedema
     Dosage: 1000 INTERNATIONAL UNIT, PRN
     Route: 065
  4. BERINERT [Suspect]
     Active Substance: HUMAN C1-ESTERASE INHIBITOR
     Indication: Hereditary angioedema
     Dosage: 1000 INTERNATIONAL UNIT, PRN
     Route: 065
  5. SODIUM CHLORIDE [Concomitant]
     Active Substance: SODIUM CHLORIDE

REACTIONS (31)
  - Flushing [Not Recovered/Not Resolved]
  - Asthenia [Not Recovered/Not Resolved]
  - Malaise [Not Recovered/Not Resolved]
  - Hypoaesthesia [Not Recovered/Not Resolved]
  - Hypoaesthesia [Not Recovered/Not Resolved]
  - Paraesthesia [Not Recovered/Not Resolved]
  - Injection site pruritus [Not Recovered/Not Resolved]
  - Injection site pain [Recovered/Resolved]
  - No adverse event [Unknown]
  - Off label use [Unknown]
  - Dizziness [Unknown]
  - Flushing [Recovered/Resolved]
  - Asthenia [Recovered/Resolved]
  - Malaise [Recovered/Resolved]
  - Dizziness [Recovered/Resolved]
  - Malaise [Recovered/Resolved]
  - Hypoaesthesia [Recovered/Resolved]
  - Hypoaesthesia [Recovered/Resolved]
  - Paraesthesia [Recovered/Resolved]
  - Dyspnoea [Unknown]
  - Hypoaesthesia [Unknown]
  - Paraesthesia oral [Unknown]
  - Rash [Unknown]
  - Rash [Unknown]
  - Dizziness [Not Recovered/Not Resolved]
  - Injection site reaction [Not Recovered/Not Resolved]
  - Pain [Not Recovered/Not Resolved]
  - Rash [Not Recovered/Not Resolved]
  - Paraesthesia [Not Recovered/Not Resolved]
  - Hypoaesthesia [Not Recovered/Not Resolved]
  - Dyspnoea [Not Recovered/Not Resolved]
